FAERS Safety Report 14500250 (Version 3)
Quarter: 2018Q2

REPORT INFORMATION
  Report Type: Report from Study
  Country: NL (occurrence: NL)
  Receive Date: 20180207
  Receipt Date: 20180425
  Transmission Date: 20180711
  Serious: Yes (Hospitalization, Other)
  Sender: FDA-Public Use
  Company Number: NL-BEH-2018087412

PATIENT
  Age: 66 Year
  Sex: Male

DRUGS (23)
  1. BLINDED PLACEBO [Suspect]
     Active Substance: INVESTIGATIONAL PRODUCT
     Indication: HAEMORRHAGE
     Dosage: UNK
     Route: 065
     Dates: start: 20180129, end: 20180129
  2. SPIRIVA [Concomitant]
     Active Substance: TIOTROPIUM BROMIDE MONOHYDRATE
     Dosage: 36 ?G, UNK
     Route: 065
  3. PARACETAMOL [Concomitant]
     Active Substance: ACETAMINOPHEN
     Dosage: 1000 MG, PRN
     Route: 065
  4. FENTANYL. [Concomitant]
     Active Substance: FENTANYL
     Indication: SURGERY
     Dosage: 0.05 MG/ML, UNK
     Route: 065
  5. HEPARINE                           /00027701/ [Concomitant]
     Active Substance: HEPARIN SODIUM
     Indication: SURGERY
     Dosage: 5000 IU/ML, UNK
     Route: 065
  6. PROTAMINE [Concomitant]
     Active Substance: PROTAMINE
     Indication: SURGERY
     Dosage: 1000 IU, UNK
     Route: 065
  7. PANTOZOL [Concomitant]
     Active Substance: PANTOPRAZOLE SODIUM
     Dosage: 80 MG, UNK
     Route: 065
  8. CALCIUMGLUCONAAT [Concomitant]
     Indication: SURGERY
     Dosage: 100 MG/ML, UNK
     Route: 065
  9. MIDAZOLAM [Concomitant]
     Active Substance: MIDAZOLAM HYDROCHLORIDE
     Indication: SURGERY
  10. CEFAZOLINE [Concomitant]
     Active Substance: CEFAZOLIN SODIUM
     Indication: SURGERY
     Dosage: 1000 MG, UNK
     Route: 065
  11. HAEMOCOMPLETTAN P [Suspect]
     Active Substance: FIBRINOGEN HUMAN
     Indication: HAEMORRHAGE
     Dosage: UNK
     Route: 065
     Dates: start: 20180129, end: 20180129
  12. NITROUS OXIDE. [Concomitant]
     Active Substance: NITROUS OXIDE
     Indication: SURGERY
  13. ROCURONIUM [Concomitant]
     Active Substance: ROCURONIUM BROMIDE
     Indication: SURGERY
     Dosage: 10 MG/ML, UNK
     Route: 065
  14. EFEDRINE HCL [Concomitant]
     Indication: SURGERY
     Dosage: 5 MG/ML, UNK
     Route: 065
  15. TRANEXAMIC ACID. [Concomitant]
     Active Substance: TRANEXAMIC ACID
     Indication: SURGERY
     Dosage: 100 MG/ML, UNK
     Route: 065
  16. NORADRENALINE                      /00127501/ [Concomitant]
     Active Substance: NOREPINEPHRINE
     Indication: SURGERY
     Dosage: 0.1 MG/ML, UNK
     Route: 065
  17. HYDROCORTISON                      /00028601/ [Concomitant]
     Active Substance: HYDROCORTISONE
     Indication: SURGERY
     Dosage: 100 MG, UNK
     Route: 065
  18. SODIUM CHLORIDE. [Concomitant]
     Active Substance: SODIUM CHLORIDE
     Indication: SURGERY
  19. AMIODARONE [Concomitant]
     Active Substance: AMIODARONE
     Indication: SURGERY
     Dosage: 50 MG/ML, UNK
     Route: 065
  20. MILRINONE [Concomitant]
     Active Substance: MILRINONE
     Indication: SURGERY
     Dosage: 0.2 MG/ML, UNK
     Route: 065
  21. ASCAL                              /00002702/ [Concomitant]
     Active Substance: ASPIRIN CALCIUM
     Dosage: 100 MG, BID
     Route: 065
  22. ATROVENT [Concomitant]
     Active Substance: IPRATROPIUM BROMIDE
     Dosage: 200 ?G, PRN
     Route: 065
  23. PROPOFOL. [Concomitant]
     Active Substance: PROPOFOL
     Indication: SURGERY
     Dosage: 10 MG/ML, UNK
     Route: 065

REACTIONS (1)
  - Ventricular fibrillation [Unknown]

NARRATIVE: CASE EVENT DATE: 20180129
